FAERS Safety Report 23429836 (Version 3)
Quarter: 2024Q2

REPORT INFORMATION
  Report Type: Spontaneous
  Country: JP (occurrence: JP)
  Receive Date: 20240122
  Receipt Date: 20240524
  Transmission Date: 20240715
  Serious: Yes (Death, Hospitalization, Other)
  Sender: FDA-Public Use
  Company Number: JP-MSD-2401JPN001779J

PATIENT
  Age: 56 Year
  Sex: Male

DRUGS (1)
  1. KEYTRUDA [Suspect]
     Active Substance: PEMBROLIZUMAB
     Indication: Lung adenocarcinoma
     Dosage: UNK
     Route: 041
     Dates: start: 20211127

REACTIONS (3)
  - Pericardial effusion [Not Recovered/Not Resolved]
  - Malignant neoplasm progression [Fatal]
  - Pleural effusion [Unknown]

NARRATIVE: CASE EVENT DATE: 20211201
